FAERS Safety Report 9688286 (Version 1)
Quarter: 2013Q4

REPORT INFORMATION
  Report Type: Spontaneous
  Country: US (occurrence: US)
  Receive Date: 20131114
  Receipt Date: 20131114
  Transmission Date: 20140711
  Serious: No
  Sender: FDA-Public Use
  Company Number: US-BAYER-2013-138863

PATIENT
  Age: 78 Year
  Sex: Female
  Weight: 113 kg

DRUGS (2)
  1. ALEVE CAPLET [Suspect]
     Indication: MYALGIA
     Dosage: 3 DF, ONCE
     Route: 048
     Dates: start: 20131108
  2. NEXIUM [Concomitant]

REACTIONS (1)
  - Inappropriate schedule of drug administration [None]
